FAERS Safety Report 9012629 (Version 1)
Quarter: 2013Q1

REPORT INFORMATION
  Report Type: Spontaneous
  Country: IT (occurrence: IT)
  Receive Date: 20130114
  Receipt Date: 20130114
  Transmission Date: 20140127
  Serious: Yes (Hospitalization)
  Sender: FDA-Public Use
  Company Number: PHHY2013IT002354

PATIENT
  Sex: Female

DRUGS (5)
  1. LOSARTAN [Suspect]
     Indication: HYPERTENSION
     Dosage: 50 MG, UNK
     Route: 048
     Dates: start: 20120811, end: 20121221
  2. COUMADIN [Suspect]
     Indication: VERTEBRAL ARTERY DISSECTION
     Dosage: 6.25 MG, UNK
     Route: 048
     Dates: start: 20120811, end: 20121221
  3. SERTRALINE [Concomitant]
     Indication: PSYCHOTIC DISORDER
  4. LORAZEPAM [Concomitant]
  5. OMEPRAZOLE [Concomitant]

REACTIONS (3)
  - International normalised ratio increased [Recovered/Resolved]
  - Hypotension [Recovered/Resolved]
  - Blood creatinine increased [Unknown]
